FAERS Safety Report 6084054-5 (Version None)
Quarter: 2009Q1

REPORT INFORMATION
  Report Type: 
  Country: None (occurrence: None)
  Receive Date: 20090217
  Receipt Date: 20090217
  Transmission Date: 20090719
  Serious: No
  Sender: FDA-Public Use
  Company Number: None

PATIENT

DRUGS (1)
  1. MUCINEX [Suspect]
     Indication: COUGH
     Dosage: 2 TXP EVERY 4 HRS PO
     Route: 048
     Dates: start: 20090211, end: 20090213

REACTIONS (1)
  - PRODUCT QUALITY ISSUE [None]
